FAERS Safety Report 13360487 (Version 1)
Quarter: 2017Q1

REPORT INFORMATION
  Report Type: Spontaneous
  Country: LT (occurrence: LT)
  Receive Date: 20170322
  Receipt Date: 20170322
  Transmission Date: 20170429
  Serious: Yes (Death, Other)
  Sender: FDA-Public Use
  Company Number: LT-JNJFOC-20170322421

PATIENT
  Age: 68 Year
  Sex: Female

DRUGS (2)
  1. FRAXIPARINE [Concomitant]
     Active Substance: NADROPARIN CALCIUM
     Indication: DEEP VEIN THROMBOSIS
     Dates: start: 201506
  2. RIVAROXABAN [Suspect]
     Active Substance: RIVAROXABAN
     Indication: DEEP VEIN THROMBOSIS
     Route: 048
     Dates: start: 201506

REACTIONS (5)
  - Pericardial effusion [Unknown]
  - Aortic intramural haematoma [Unknown]
  - Aortic aneurysm rupture [Unknown]
  - Death [Fatal]
  - Pericardial haemorrhage [Unknown]

NARRATIVE: CASE EVENT DATE: 20150623
